FAERS Safety Report 9082942 (Version 1)
Quarter: 2013Q1

REPORT INFORMATION
  Report Type: Report from Study
  Country: US (occurrence: US)
  Receive Date: 20130130
  Receipt Date: 20130130
  Transmission Date: 20140127
  Serious: No
  Sender: FDA-Public Use
  Company Number: US-ABBOTT-12P-163-0979036-00

PATIENT
  Age: 48 Year
  Sex: Female

DRUGS (4)
  1. HUMIRA [Suspect]
     Indication: SARCOIDOSIS
     Dates: start: 20120807
  2. WELLBUTRIN [Concomitant]
     Indication: DEPRESSION
  3. VALTREX [Concomitant]
     Indication: ORAL HERPES
  4. MICROGESTIN [Concomitant]
     Indication: CONTRACEPTION

REACTIONS (6)
  - Feeling abnormal [Not Recovered/Not Resolved]
  - Cough [Recovering/Resolving]
  - Headache [Not Recovered/Not Resolved]
  - Chest pain [Not Recovered/Not Resolved]
  - Dyspnoea [Recovering/Resolving]
  - Upper respiratory tract infection [Recovering/Resolving]
